FAERS Safety Report 11791235 (Version 1)
Quarter: 2015Q4

REPORT INFORMATION
  Report Type: Spontaneous
  Country: US (occurrence: None)
  Receive Date: 20151130
  Receipt Date: 20151130
  Transmission Date: 20160305
  Serious: Yes (Hospitalization)
  Sender: FDA-Public Use
  Company Number: None

PATIENT
  Age: 5 Month
  Sex: Female
  Weight: 79.83 kg

DRUGS (9)
  1. OMEPRAZOLE. [Concomitant]
     Active Substance: OMEPRAZOLE
  2. LOVASTATIN. [Concomitant]
     Active Substance: LOVASTATIN
  3. METOPROLOL [Concomitant]
     Active Substance: METOPROLOL
  4. GABAPENTIN. [Concomitant]
     Active Substance: GABAPENTIN
  5. VISMODEGIB 150 MG GENENTECH [Suspect]
     Active Substance: VISMODEGIB
     Indication: BASAL CELL CARCINOMA
     Route: 048
     Dates: start: 20141112, end: 20150416
  6. FOLIC ACID. [Concomitant]
     Active Substance: FOLIC ACID
  7. THIAMINE. [Concomitant]
     Active Substance: THIAMINE
  8. IRON [Concomitant]
     Active Substance: IRON
  9. ASPIRIN. [Concomitant]
     Active Substance: ASPIRIN

REACTIONS (2)
  - Myocardial infarction [None]
  - Ventricular septal defect [None]

NARRATIVE: CASE EVENT DATE: 20151022
